FAERS Safety Report 23284664 (Version 1)
Quarter: 2023Q4

REPORT INFORMATION
  Report Type: Spontaneous
  Country: US (occurrence: US)
  Receive Date: 20231211
  Receipt Date: 20231211
  Transmission Date: 20240109
  Serious: No
  Sender: FDA-Public Use
  Company Number: US-PFIZER INC-PV202300195822

PATIENT
  Age: 69 Year
  Sex: Female

DRUGS (1)
  1. INDOMETHACIN [Suspect]
     Active Substance: INDOMETHACIN
     Dosage: UNK

REACTIONS (4)
  - Drug hypersensitivity [Unknown]
  - Palpitations [Unknown]
  - Dyspnoea [Unknown]
  - Diarrhoea [Unknown]
